FAERS Safety Report 4786652-5 (Version None)
Quarter: 2005Q4

REPORT INFORMATION
  Report Type: 
  Country: None (occurrence: None)
  Receive Date: 20051003
  Receipt Date: 20051003
  Transmission Date: 20060501
  Serious: Yes (Hospitalization, Disabling, Other)
  Sender: FDA-Public Use
  Company Number: None

PATIENT
  Age: 21 Year
  Sex: Female
  Weight: 63.5036 kg

DRUGS (3)
  1. OVCON-35 [Suspect]
     Indication: CYST
     Dosage: PO ONE QD
     Route: 048
     Dates: start: 20050601, end: 20050913
  2. OVCON-35 [Suspect]
     Indication: PROPHYLAXIS
     Dosage: PO ONE QD
     Route: 048
     Dates: start: 20050601, end: 20050913
  3. NORTRIPTYLINE HCL [Suspect]
     Indication: HEADACHE
     Dosage: PO TWO HS
     Route: 048
     Dates: start: 20050817, end: 20050913

REACTIONS (1)
  - CEREBROVASCULAR ACCIDENT [None]
